FAERS Safety Report 9776331 (Version 1)
Quarter: 2013Q4

REPORT INFORMATION
  Report Type: Spontaneous
  Country: JP (occurrence: JP)
  Receive Date: 20131220
  Receipt Date: 20131220
  Transmission Date: 20140711
  Serious: Yes (Other)
  Sender: FDA-Public Use
  Company Number: JP-MYLANLABS-2013S1028229

PATIENT
  Sex: Female

DRUGS (3)
  1. EPIRUBICIN [Suspect]
     Indication: BREAST CANCER
     Route: 041
  2. ENDOXAN [Suspect]
     Indication: BREAST CANCER
     Route: 041
  3. FLUOROURACIL [Suspect]
     Indication: BREAST CANCER
     Route: 041

REACTIONS (11)
  - Phlebitis [Unknown]
  - Leukopenia [Unknown]
  - Neutropenia [Unknown]
  - Stomatitis [Unknown]
  - Pyrexia [Unknown]
  - Anaemia [Unknown]
  - Dysgeusia [Unknown]
  - Nausea [Unknown]
  - Vomiting [Unknown]
  - Diarrhoea [Unknown]
  - Constipation [Unknown]
